FAERS Safety Report 22222609 (Version 1)
Quarter: 2023Q2

REPORT INFORMATION
  Report Type: Spontaneous
  Country: US (occurrence: US)
  Receive Date: 20230418
  Receipt Date: 20230418
  Transmission Date: 20230722
  Serious: No
  Sender: FDA-Public Use
  Company Number: US-SA-SAC20230417001472

PATIENT
  Sex: Female
  Weight: 72.7 kg

DRUGS (8)
  1. AUBAGIO [Suspect]
     Active Substance: TERIFLUNOMIDE
     Indication: Multiple sclerosis
     Dosage: 1 DF, QD
     Route: 048
     Dates: start: 201812
  2. ASPIRIN [Concomitant]
     Active Substance: ASPIRIN
     Dosage: UNK
  3. BIOTIN [Concomitant]
     Active Substance: BIOTIN
     Dosage: UNK
  4. CITRUCEL [Concomitant]
     Active Substance: METHYLCELLULOSE (4000 MPA.S)
     Dosage: UNK
  5. FISH OIL [Concomitant]
     Active Substance: FISH OIL
     Dosage: UNK
  6. LISINOPRIL [Concomitant]
     Active Substance: LISINOPRIL
     Dosage: UNK
  7. SPIRONOLACTONE [Concomitant]
     Active Substance: SPIRONOLACTONE
     Dosage: UNK
  8. VITAMIN D3 [Concomitant]
     Active Substance: CHOLECALCIFEROL
     Dosage: UNK

REACTIONS (1)
  - Herpes zoster [Unknown]
